FAERS Safety Report 8890898 (Version 1)
Quarter: 2012Q4

REPORT INFORMATION
  Report Type: 
  Country: US (occurrence: US)
  Receive Date: 20121106
  Receipt Date: 20121106
  Transmission Date: 20130627
  Serious: Yes (Other)
  Sender: FDA-Public Use
  Company Number: US-ELI_LILLY_AND_COMPANY-US201210007833

PATIENT
  Age: 11 Year
  Sex: Male

DRUGS (4)
  1. STRATTERA [Suspect]
     Indication: ATTENTION DEFICIT/HYPERACTIVITY DISORDER
     Dosage: 18 mg, qd
  2. STRATTERA [Suspect]
     Dosage: 18 mg, bid
  3. LAMICTAL [Concomitant]
  4. SEROQUEL [Concomitant]
     Dosage: 50 mg, UNK

REACTIONS (1)
  - Blood glucose increased [Unknown]
